FAERS Safety Report 6725638-8 (Version None)
Quarter: 2010Q2

REPORT INFORMATION
  Report Type: 
  Country: None (occurrence: None)
  Receive Date: 20100514
  Receipt Date: 20100503
  Transmission Date: 20101027
  Serious: Yes (Other)
  Sender: FDA-Public Use
  Company Number: BR-JNJFOC-20100504416

PATIENT
  Age: 75 Year
  Sex: Female

DRUGS (7)
  1. TRAMAL [Suspect]
     Indication: BACK PAIN
     Dosage: 2 TIMES ONCE A DAY
     Route: 065
  2. TRAMAL [Suspect]
     Route: 065
  3. LYRICA [Suspect]
     Indication: BACK PAIN
     Dosage: 2 TIMES ONCE A DAY
     Route: 048
  4. MORPHINE [Suspect]
     Indication: BACK PAIN
     Route: 065
  5. TYLEX [Concomitant]
  6. VOLTAREN [Concomitant]
  7. ALL OTHER THERAPEUTIC PRODUCTS [Concomitant]

REACTIONS (6)
  - DRUG INEFFECTIVE [None]
  - HEADACHE [None]
  - NAUSEA [None]
  - PAIN [None]
  - SPINAL OPERATION [None]
  - WEIGHT DECREASED [None]
